FAERS Safety Report 9110462 (Version 1)
Quarter: 2013Q1

REPORT INFORMATION
  Report Type: Spontaneous
  Country: US (occurrence: US)
  Receive Date: 20130219
  Receipt Date: 20130219
  Transmission Date: 20140127
  Serious: Yes (Other)
  Sender: FDA-Public Use
  Company Number: US-BRACCO-008687

PATIENT
  Sex: Female

DRUGS (3)
  1. ISOVUE [Suspect]
     Indication: ARTERIOVENOUS FISTULA THROMBOSIS
     Route: 042
     Dates: start: 20120815, end: 20120815
  2. ISOVUE [Suspect]
     Indication: FISTULOGRAM
     Route: 042
     Dates: start: 20120815, end: 20120815
  3. EPINEPHRINE [Concomitant]
     Route: 042
     Dates: start: 20120815, end: 20120815

REACTIONS (1)
  - Hypersensitivity [Recovered/Resolved]
